FAERS Safety Report 14667854 (Version 10)
Quarter: 2025Q2

REPORT INFORMATION
  Report Type: Spontaneous
  Country: US (occurrence: US)
  Receive Date: 20180322
  Receipt Date: 20250401
  Transmission Date: 20250716
  Serious: Yes (Hospitalization)
  Sender: PFIZER
  Company Number: US-PFIZER INC-2018120343

PATIENT
  Age: 71 Year
  Sex: Female
  Weight: 92.971 kg

DRUGS (2)
  1. XELJANZ XR [Suspect]
     Active Substance: TOFACITINIB CITRATE
     Indication: Rheumatoid arthritis
     Dosage: 11 MG, 1X/DAY
     Route: 048
     Dates: start: 2013
  2. XELJANZ XR [Suspect]
     Active Substance: TOFACITINIB CITRATE
     Route: 048

REACTIONS (10)
  - Pneumonia [Recovered/Resolved]
  - Herpes zoster [Not Recovered/Not Resolved]
  - COVID-19 [Not Recovered/Not Resolved]
  - Influenza [Not Recovered/Not Resolved]
  - Hepatic enzyme increased [Recovered/Resolved]
  - Joint swelling [Unknown]
  - Malaise [Unknown]
  - Nerve injury [Unknown]
  - Malaise [Unknown]
  - Post herpetic neuralgia [Unknown]

NARRATIVE: CASE EVENT DATE: 20231023
